FAERS Safety Report 8075326-3 (Version None)
Quarter: 2012Q1

REPORT INFORMATION
  Report Type: 
  Country: None (occurrence: None)
  Receive Date: 20120127
  Receipt Date: 20111013
  Transmission Date: 20120608
  Serious: No
  Sender: FDA-Public Use
  Company Number: US-MYLANLABS-2011S1021429

PATIENT
  Age: 58 Year
  Sex: Female

DRUGS (2)
  1. CLONIDINE [Suspect]
     Dosage: QWEEKLY
     Route: 062
     Dates: start: 20111011, end: 20110101
  2. CLONIDINE [Suspect]
     Indication: BLOOD PRESSURE INCREASED
     Dosage: QWEEKLY
     Route: 062

REACTIONS (7)
  - DRY MOUTH [None]
  - HYPOAESTHESIA [None]
  - ANXIETY [None]
  - PAIN IN EXTREMITY [None]
  - NERVOUSNESS [None]
  - HEADACHE [None]
  - DRY EYE [None]
